FAERS Safety Report 6050268-3 (Version None)
Quarter: 2009Q1

REPORT INFORMATION
  Report Type: 
  Country: None (occurrence: None)
  Receive Date: 20090126
  Receipt Date: 20090126
  Transmission Date: 20090719
  Serious: Yes (Death, Life-Threatening, Hospitalization)
  Sender: FDA-Public Use
  Company Number: ES-ABBOTT-09P-144-0498565-00

PATIENT
  Age: 53 Year
  Sex: Male

DRUGS (1)
  1. HUMIRA [Suspect]
     Indication: PUSTULAR PSORIASIS
     Dates: start: 20070101, end: 20081222

REACTIONS (5)
  - CEREBRAL HAEMORRHAGE [None]
  - ENCEPHALITIS [None]
  - HEADACHE [None]
  - PYREXIA [None]
  - VISUAL IMPAIRMENT [None]
